FAERS Safety Report 20873140 (Version 1)
Quarter: 2022Q2

REPORT INFORMATION
  Report Type: Spontaneous
  Country: US (occurrence: US)
  Receive Date: 20220525
  Receipt Date: 20220525
  Transmission Date: 20220721
  Serious: Yes (Other)
  Sender: FDA-Public Use
  Company Number: US-PFIZER INC-202200739289

PATIENT
  Age: 69 Year
  Sex: Male

DRUGS (1)
  1. TAFAMIDIS [Suspect]
     Active Substance: TAFAMIDIS
     Dosage: UNK
     Dates: start: 200907

REACTIONS (4)
  - Erectile dysfunction [Unknown]
  - Fatigue [Unknown]
  - Exercise tolerance decreased [Unknown]
  - Dyspnoea [Unknown]
